FAERS Safety Report 8094463-0 (Version None)
Quarter: 2012Q1

REPORT INFORMATION
  Report Type: 
  Country: None (occurrence: None)
  Receive Date: 20120130
  Receipt Date: 20120116
  Transmission Date: 20120608
  Serious: Yes (Other)
  Sender: FDA-Public Use
  Company Number: US-ELI_LILLY_AND_COMPANY-US201201005450

PATIENT
  Sex: Male

DRUGS (5)
  1. CYMBALTA [Suspect]
     Indication: PAIN MANAGEMENT
     Dosage: 30 MG, QD
     Dates: start: 20120109
  2. PREDNISONE TAB [Concomitant]
     Dosage: 5 MG, QD
  3. NAMENDA [Concomitant]
     Dosage: 10 MG, BID
  4. DDAVP [Concomitant]
     Dosage: 0.1 MG, QD
  5. SYNTHROID [Concomitant]
     Dosage: 0.15 MG, QD

REACTIONS (3)
  - SENSORY LOSS [None]
  - FALL [None]
  - OFF LABEL USE [None]
